FAERS Safety Report 7032850-X (Version None)
Quarter: 2010Q4

REPORT INFORMATION
  Report Type: 
  Country: None (occurrence: None)
  Receive Date: 20101007
  Receipt Date: 20090818
  Transmission Date: 20110411
  Serious: No
  Sender: FDA-Public Use
  Company Number: US-PFIZER INC-2009257654

PATIENT

DRUGS (1)
  1. ANTIVERT [Suspect]
     Dosage: 25 MG, UNK

REACTIONS (1)
  - FEELING ABNORMAL [None]
